FAERS Safety Report 9650987 (Version 1)
Quarter: 2013Q4

REPORT INFORMATION
  Report Type: Report from Study
  Country: CA (occurrence: CA)
  Receive Date: 20131029
  Receipt Date: 20131029
  Transmission Date: 20140711
  Serious: Yes (Hospitalization)
  Sender: FDA-Public Use
  Company Number: CA-JNJFOC-20131013241

PATIENT
  Age: 7 Year
  Sex: Male
  Weight: 23 kg

DRUGS (4)
  1. REMICADE [Suspect]
     Indication: CROHN^S DISEASE
     Route: 042
  2. REMICADE [Suspect]
     Indication: CROHN^S DISEASE
     Route: 042
     Dates: start: 20130514, end: 2013
  3. SULFASALAZINE [Concomitant]
     Route: 065
  4. VANCOMYCIN [Concomitant]
     Route: 065

REACTIONS (2)
  - Clostridium difficile infection [Unknown]
  - Crohn^s disease [Unknown]
